FAERS Safety Report 24571606 (Version 2)
Quarter: 2024Q4

REPORT INFORMATION
  Report Type: Spontaneous
  Country: GB (occurrence: GB)
  Receive Date: 20241101
  Receipt Date: 20241113
  Transmission Date: 20250114
  Serious: Yes (Hospitalization)
  Sender: MYLAN
  Company Number: GB-MYLANLABS-2024M1096101

PATIENT
  Sex: Male

DRUGS (1)
  1. CLOZARIL [Suspect]
     Active Substance: CLOZAPINE
     Indication: Schizophrenia
     Dosage: UNK
     Route: 048
     Dates: start: 20111128, end: 20241023

REACTIONS (4)
  - Malaise [Unknown]
  - Pneumonia [Unknown]
  - Diabetic ketoacidosis [Unknown]
  - Differential white blood cell count abnormal [Unknown]
